FAERS Safety Report 8264971-8 (Version None)
Quarter: 2012Q2

REPORT INFORMATION
  Report Type: 
  Country: None (occurrence: None)
  Receive Date: 20120403
  Receipt Date: 20120322
  Transmission Date: 20120825
  Serious: Yes (Disabling)
  Sender: FDA-Public Use
  Company Number: 2012AP000809

PATIENT
  Age: 67 Year
  Sex: Male

DRUGS (7)
  1. ATENOLOL [Concomitant]
  2. OMEPRAZOLE [Suspect]
     Indication: HIATUS HERNIA
     Dosage: 20 MG;UNKNOWN;PO;BID
     Route: 048
     Dates: start: 20120119, end: 20120209
  3. ASPIRIN [Concomitant]
  4. RANITIDINE HYDROCHLORIDE [Concomitant]
  5. SIMVASTATIN [Concomitant]
  6. TAMSULOSIN HCL [Concomitant]
  7. TOLTERODINE TARTRATE [Concomitant]

REACTIONS (4)
  - MYALGIA [None]
  - HYPOMAGNESAEMIA [None]
  - ABASIA [None]
  - MUSCULAR WEAKNESS [None]
